FAERS Safety Report 21659842 (Version 1)
Quarter: 2022Q4

REPORT INFORMATION
  Report Type: Spontaneous
  Country: FR (occurrence: FR)
  Receive Date: 20221130
  Receipt Date: 20221130
  Transmission Date: 20230113
  Serious: Yes (Hospitalization, Other)
  Sender: FDA-Public Use
  Company Number: FR-AFSSAPS-AVLY20220414

PATIENT
  Age: 30 Year
  Sex: Male

DRUGS (3)
  1. DIAZEPAM [Suspect]
     Active Substance: DIAZEPAM
     Indication: Product used for unknown indication
     Dosage: UNK (INCONNUE)
     Route: 065
  2. SERTRALINE [Suspect]
     Active Substance: SERTRALINE HYDROCHLORIDE
     Indication: Product used for unknown indication
     Dosage: UNK (INCONNUE)
     Route: 065
  3. OXAZEPAM [Suspect]
     Active Substance: OXAZEPAM
     Indication: Product used for unknown indication
     Dosage: UNK (INCONNUE)
     Route: 065

REACTIONS (5)
  - Psychomotor hyperactivity [Not Recovered/Not Resolved]
  - Skin infection [Not Recovered/Not Resolved]
  - Suicide attempt [Not Recovered/Not Resolved]
  - Persecutory delusion [Not Recovered/Not Resolved]
  - Poisoning deliberate [Not Recovered/Not Resolved]
